FAERS Safety Report 7712501-9 (Version None)
Quarter: 2011Q3

REPORT INFORMATION
  Report Type: 
  Country: None (occurrence: None)
  Receive Date: 20110823
  Receipt Date: 20110401
  Transmission Date: 20111222
  Serious: Yes (Hospitalization)
  Sender: FDA-Public Use
  Company Number: FDB-2011-036

PATIENT
  Sex: Female
  Weight: 51.2565 kg

DRUGS (1)
  1. TECHNETIUM 99M SULFUR COLLOID SOLUTION/INJ [Suspect]
     Indication: LIVER SCAN
     Dosage: 6.2MCI, IV
     Route: 042
     Dates: start: 20110401

REACTIONS (9)
  - HYPOAESTHESIA ORAL [None]
  - NAUSEA [None]
  - DYSPNOEA [None]
  - HYPERKALAEMIA [None]
  - VOMITING [None]
  - CHEST PAIN [None]
  - THYROID DISORDER [None]
  - DIARRHOEA [None]
  - ELECTROCARDIOGRAM ST SEGMENT ABNORMAL [None]
